FAERS Safety Report 14649877 (Version 1)
Quarter: 2018Q1

REPORT INFORMATION
  Report Type: Spontaneous
  Country: US (occurrence: US)
  Receive Date: 20180316
  Receipt Date: 20180316
  Transmission Date: 20180509
  Serious: No
  Sender: FDA-Public Use
  Company Number: US-AKRON, INC.-2043960

PATIENT
  Sex: Male

DRUGS (1)
  1. BROMFENAC OPHTHALMIC SOLUTION, 0.09% [Suspect]
     Active Substance: BROMFENAC SODIUM
     Route: 047

REACTIONS (2)
  - Eye irritation [Unknown]
  - Vision blurred [Unknown]
